FAERS Safety Report 21617251 (Version 1)
Quarter: 2022Q4

REPORT INFORMATION
  Report Type: Report from Study
  Country: US (occurrence: US)
  Receive Date: 20221118
  Receipt Date: 20221118
  Transmission Date: 20230113
  Serious: Yes (Other)
  Sender: FDA-Public Use
  Company Number: US-ABBVIE-4205675

PATIENT
  Sex: Male

DRUGS (1)
  1. HUMIRA [Suspect]
     Active Substance: ADALIMUMAB
     Indication: Crohn^s disease
     Dosage: HUMIRA 40MG/0.4ML, STRENGTH: 40MG, CF
     Route: 058

REACTIONS (3)
  - Metal poisoning [Recovering/Resolving]
  - Illness [Recovering/Resolving]
  - Exposure via inhalation [Recovering/Resolving]
